FAERS Safety Report 20553706 (Version 1)
Quarter: 2022Q1

REPORT INFORMATION
  Report Type: Spontaneous
  Country: FR (occurrence: FR)
  Receive Date: 20220304
  Receipt Date: 20220304
  Transmission Date: 20220423
  Serious: Yes (Other)
  Sender: FDA-Public Use
  Company Number: FR-ABBVIE-22K-056-4301162-00

PATIENT
  Sex: Female

DRUGS (4)
  1. VALPROATE SODIUM [Suspect]
     Active Substance: VALPROATE SODIUM
     Indication: Affective disorder
     Dosage: IN THE EVENING
     Route: 065
  2. PRAZEPAM [Concomitant]
     Active Substance: PRAZEPAM
     Indication: Product used for unknown indication
  3. OMEPRAZOLE [Concomitant]
     Active Substance: OMEPRAZOLE
     Indication: Product used for unknown indication
  4. PIROXICAM BETADEX [Concomitant]
     Active Substance: PIROXICAM BETADEX
     Indication: Product used for unknown indication

REACTIONS (10)
  - Major depression [Unknown]
  - Hot flush [Unknown]
  - Depressed mood [Unknown]
  - Nightmare [Unknown]
  - Off label use [Unknown]
  - Insomnia [Unknown]
  - Arthralgia [Unknown]
  - Malaise [Unknown]
  - Headache [Unknown]
  - Tremor [Unknown]
